FAERS Safety Report 10579288 (Version 2)
Quarter: 2014Q4

REPORT INFORMATION
  Report Type: Spontaneous
  Country: RU (occurrence: RU)
  Receive Date: 20141112
  Receipt Date: 20141112
  Transmission Date: 20150529
  Serious: Yes (Hospitalization)
  Sender: FDA-Public Use
  Company Number: RU-BRISTOL-MYERS SQUIBB COMPANY-20209268

PATIENT
  Age: 53 Year
  Sex: Female
  Weight: 85 kg

DRUGS (3)
  1. DEXAMETHASONE. [Concomitant]
     Active Substance: DEXAMETHASONE
     Indication: PREMEDICATION
     Dosage: 8571MG
     Route: 042
     Dates: start: 20130516
  2. ERBITUX [Suspect]
     Active Substance: CETUXIMAB
     Indication: COLON CANCER
     Dosage: RESTARTED ON NOV13, INRUPTED 16DEC?JAN14:UNK:400MG, DISCONTINUED ON 17FEB2014
     Route: 042
     Dates: start: 20130516, end: 20140217
  3. HEPTRAL [Concomitant]
     Active Substance: ADEMETIONINE

REACTIONS (3)
  - Dermatitis acneiform [Recovering/Resolving]
  - Thrombocytopenia [Recovered/Resolved]
  - Ecchymosis [Unknown]

NARRATIVE: CASE EVENT DATE: 201312
